FAERS Safety Report 4616139-1 (Version None)
Quarter: 2005Q1

REPORT INFORMATION
  Report Type: 
  Country: None (occurrence: None)
  Receive Date: 20050323
  Receipt Date: 20050314
  Transmission Date: 20050727
  Serious: Yes (Death, Hospitalization)
  Sender: FDA-Public Use
  Company Number: US-AMGEN-US121570

PATIENT
  Sex: Female

DRUGS (5)
  1. PROCRIT [Suspect]
     Indication: ANAEMIA
     Dates: start: 19960101
  2. PREVACID [Concomitant]
  3. ALDACTONE [Concomitant]
  4. METOPROLOL TARTRATE [Concomitant]
  5. FOSAMAX [Concomitant]

REACTIONS (5)
  - DEATH [None]
  - GASTRIC HAEMORRHAGE [None]
  - HAEMORRHAGE [None]
  - PULMONARY HAEMORRHAGE [None]
  - TUBERCULOSIS [None]
